FAERS Safety Report 5829558-2 (Version None)
Quarter: 2008Q3

REPORT INFORMATION
  Report Type: 
  Country: None (occurrence: None)
  Receive Date: 20080731
  Receipt Date: 20080721
  Transmission Date: 20090109
  Serious: Yes (Death, Hospitalization, Other)
  Sender: FDA-Public Use
  Company Number: US-PFIZER INC-2008034004

PATIENT
  Sex: Female

DRUGS (1)
  1. BEXTRA [Suspect]
     Indication: ARTHRALGIA
     Route: 048
     Dates: start: 20030414, end: 20040811

REACTIONS (5)
  - ANXIETY [None]
  - CEREBROVASCULAR ACCIDENT [None]
  - CONVULSION [None]
  - DEPRESSION [None]
  - MYOCARDIAL INFARCTION [None]
